FAERS Safety Report 11361229 (Version 3)
Quarter: 2015Q4

REPORT INFORMATION
  Report Type: Spontaneous
  Country: US (occurrence: US)
  Receive Date: 20150810
  Receipt Date: 20151113
  Transmission Date: 20160304
  Serious: Yes (Other)
  Sender: FDA-Public Use
  Company Number: US-SA-2015SA115323

PATIENT
  Age: 54 Year
  Sex: Female

DRUGS (11)
  1. VITAMIN D3 [Concomitant]
     Active Substance: CHOLECALCIFEROL
  2. MAGNESIUM [Concomitant]
     Active Substance: MAGNESIUM
  3. IRON [Concomitant]
     Active Substance: IRON
  4. TIZANIDINE HYDROCHLORIDE. [Concomitant]
     Active Substance: TIZANIDINE HYDROCHLORIDE
  5. HYDROCODONE W/ACETAMINOPHEN [Concomitant]
     Active Substance: ACETAMINOPHEN\HYDROCODONE BITARTRATE
  6. AUBAGIO [Suspect]
     Active Substance: TERIFLUNOMIDE
     Indication: MULTIPLE SCLEROSIS
     Route: 048
  7. HYDROCORTISONE. [Concomitant]
     Active Substance: HYDROCORTISONE
  8. AUBAGIO [Suspect]
     Active Substance: TERIFLUNOMIDE
     Indication: MULTIPLE SCLEROSIS
     Route: 048
  9. DIAZEPAM. [Concomitant]
     Active Substance: DIAZEPAM
  10. BUSPIRONE HYDROCHLORIDE. [Concomitant]
     Active Substance: BUSPIRONE HYDROCHLORIDE
  11. GABAPENTIN. [Concomitant]
     Active Substance: GABAPENTIN

REACTIONS (6)
  - Intervertebral disc protrusion [Unknown]
  - Pain in extremity [Recovered/Resolved]
  - Drug dose omission [Unknown]
  - Hypoaesthesia [Unknown]
  - Mood altered [Unknown]
  - Paraesthesia [Unknown]
